FAERS Safety Report 24403342 (Version 1)
Quarter: 2024Q4

REPORT INFORMATION
  Report Type: Spontaneous
  Country: US (occurrence: US)
  Receive Date: 20241007
  Receipt Date: 20241007
  Transmission Date: 20250115
  Serious: No
  Sender: PADAGIS
  Company Number: US-PADAGIS-2024PAD01559

PATIENT

DRUGS (3)
  1. ESTRADIOL VAGINAL [Suspect]
     Active Substance: ESTRADIOL
     Indication: Hysterectomy
     Dosage: UNK
     Route: 065
  2. ESTRADIOL VAGINAL [Suspect]
     Active Substance: ESTRADIOL
     Indication: Vulvovaginal dryness
  3. ESTRADIOL VAGINAL [Suspect]
     Active Substance: ESTRADIOL
     Indication: Menopause

REACTIONS (3)
  - Underdose [Unknown]
  - Product use in unapproved indication [Unknown]
  - Product packaging quantity issue [Unknown]
